FAERS Safety Report 13007863 (Version 1)
Quarter: 2016Q4

REPORT INFORMATION
  Report Type: Other
  Country: US (occurrence: HK)
  Receive Date: 20161207
  Receipt Date: 20161207
  Transmission Date: 20170207
  Serious: Yes (Hospitalization)
  Sender: FDA-Public Use
  Company Number: HK-BRECKENRIDGE PHARMACEUTICAL, INC.-1060551

PATIENT
  Age: 52 Year
  Sex: Female

DRUGS (1)
  1. MEFENAMIC ACID. [Suspect]
     Active Substance: MEFENAMIC ACID
     Indication: DYSMENORRHOEA

REACTIONS (1)
  - Anuria [Recovered/Resolved]
